FAERS Safety Report 7648960-X (Version None)
Quarter: 2011Q3

REPORT INFORMATION
  Report Type: 
  Country: None (occurrence: None)
  Receive Date: 20110802
  Receipt Date: 20110722
  Transmission Date: 20111222
  Serious: Yes (Hospitalization, Other)
  Sender: FDA-Public Use
  Company Number: GB-AMGEN-GBRSP2011038034

PATIENT
  Age: 85 Year
  Sex: Female
  Weight: 57.143 kg

DRUGS (10)
  1. RABEPRAZOLE SODIUM [Concomitant]
     Dosage: UNK
  2. BENDROFLUMETHIAZIDE [Concomitant]
     Dosage: UNK UNK, UNK
  3. VITAMIN B12                        /00056201/ [Concomitant]
     Dosage: UNK UNK, UNK
  4. PREDNISOLONE [Concomitant]
     Dosage: UNK UNK, UNK
  5. TRAMADOL HCL [Concomitant]
     Dosage: UNK
  6. ALENDRONIC ACID [Concomitant]
     Dosage: UNK UNK, UNK
  7. ENBREL [Suspect]
     Indication: RHEUMATOID ARTHRITIS
     Dosage: 50 MG, WEEKLY
     Route: 048
  8. ACETAMINOPHEN [Concomitant]
     Dosage: UNK UNK, UNK
  9. ADCAL-D3 [Concomitant]
     Dosage: UNK UNK, UNK
  10. FERROUS FUMARATE [Concomitant]
     Dosage: UNK UNK, UNK

REACTIONS (1)
  - ACUTE MYOCARDIAL INFARCTION [None]
